FAERS Safety Report 7151865-4 (Version None)
Quarter: 2010Q4

REPORT INFORMATION
  Report Type: 
  Country: None (occurrence: None)
  Receive Date: 20101210
  Receipt Date: 20101203
  Transmission Date: 20110411
  Serious: Yes (Other)
  Sender: FDA-Public Use
  Company Number: US-ABBOTT-10P-163-0673453-00

PATIENT
  Sex: Male
  Weight: 86.26 kg

DRUGS (9)
  1. HUMIRA [Suspect]
     Indication: PSORIASIS
  2. LISINOPRIL [Concomitant]
     Indication: HYPERTENSION
  3. PANTOPRAZOLE [Concomitant]
     Indication: GASTROOESOPHAGEAL REFLUX DISEASE
  4. TRAMADOL [Concomitant]
     Indication: ARTHRALGIA
  5. OXAPROZIN [Concomitant]
     Indication: INFLAMMATION
  6. LEXAPRO [Concomitant]
     Indication: INSOMNIA
  7. TRAZODONE HCL [Concomitant]
     Indication: INSOMNIA
  8. ZYRTEC [Concomitant]
     Indication: HYPERSENSITIVITY
  9. LOTRISONE [Concomitant]
     Indication: PSORIASIS
     Dosage: LOTION

REACTIONS (4)
  - ARTHRALGIA [None]
  - JOINT CREPITATION [None]
  - NERVOUSNESS [None]
  - PSORIASIS [None]
